FAERS Safety Report 19770581 (Version 1)
Quarter: 2021Q3

REPORT INFORMATION
  Report Type: Spontaneous
  Country: US (occurrence: US)
  Receive Date: 20210831
  Receipt Date: 20210831
  Transmission Date: 20211014
  Serious: Yes (Disabling)
  Sender: FDA-Public Use
  Company Number: None

PATIENT
  Age: 29 Year
  Sex: Male
  Weight: 74.25 kg

DRUGS (2)
  1. TYLENOL [Concomitant]
     Active Substance: ACETAMINOPHEN
  2. HUMIRA [Suspect]
     Active Substance: ADALIMUMAB
     Indication: CROHN^S DISEASE
     Dosage: ?QUANTITY:1 INJECTION(S);?OTHER FREQUENCY:EVERY OTHER WEEK;?
     Route: 058
     Dates: start: 20200801

REACTIONS (1)
  - Anxiety [None]

NARRATIVE: CASE EVENT DATE: 20200801
